FAERS Safety Report 14295614 (Version 1)
Quarter: 2017Q4

REPORT INFORMATION
  Report Type: Spontaneous
  Country: US (occurrence: US)
  Receive Date: 20171218
  Receipt Date: 20171218
  Transmission Date: 20180321
  Serious: No
  Sender: FDA-Public Use
  Company Number: US-PFIZER INC-2017538543

PATIENT
  Age: 73 Year
  Sex: Female

DRUGS (1)
  1. OXYTETRACYCLINE HCL [Suspect]
     Active Substance: OXYTETRACYCLINE HYDROCHLORIDE
     Dosage: UNK

REACTIONS (3)
  - Dyspnoea [Unknown]
  - Feeling abnormal [Unknown]
  - Drug hypersensitivity [Unknown]
